FAERS Safety Report 19955460 (Version 1)
Quarter: 2021Q4

REPORT INFORMATION
  Report Type: Report from Study
  Country: None (occurrence: NL)
  Receive Date: 20211013
  Receipt Date: 20211013
  Transmission Date: 20220303
  Serious: Yes (Hospitalization)
  Sender: FDA-Public Use
  Company Number: NL-ASTRAZENECA-2021A763567

PATIENT
  Sex: Female
  Weight: 6.8 kg

DRUGS (1)
  1. SYNAGIS [Suspect]
     Active Substance: PALIVIZUMAB
     Indication: Bronchopulmonary dysplasia
     Dosage: 15ML/KG MONTHLY
     Route: 030

REACTIONS (2)
  - Cholelithiasis [Unknown]
  - Pancreatitis [Unknown]
